FAERS Safety Report 21577478 (Version 1)
Quarter: 2022Q4

REPORT INFORMATION
  Report Type: Spontaneous
  Country: GB (occurrence: GB)
  Receive Date: 20221110
  Receipt Date: 20221110
  Transmission Date: 20230112
  Serious: Yes (Other)
  Sender: FDA-Public Use
  Company Number: GB-SUN PHARMACEUTICAL INDUSTRIES LTD-2022RR-361609

PATIENT

DRUGS (1)
  1. OLANZAPINE [Suspect]
     Active Substance: OLANZAPINE
     Indication: Product used for unknown indication
     Dosage: 10 MILLIGRAM TABLETS
     Route: 065

REACTIONS (14)
  - Somnolence [Unknown]
  - Product use issue [Unknown]
  - Gait disturbance [Unknown]
  - Vomiting [Unknown]
  - Drug level decreased [Unknown]
  - Hospitalisation [Unknown]
  - Nervousness [Unknown]
  - Anxiety [Unknown]
  - Bradykinesia [Unknown]
  - Fatigue [Unknown]
  - Pruritus [Unknown]
  - Bradykinesia [Unknown]
  - Counterfeit product administered [Unknown]
  - Drug ineffective [Unknown]
